FAERS Safety Report 5730956-6 (Version None)
Quarter: 2008Q2

REPORT INFORMATION
  Report Type: 
  Country: None (occurrence: None)
  Receive Date: 20080430
  Receipt Date: 20071218
  Transmission Date: 20081010
  Serious: No
  Sender: FDA-Public Use
  Company Number: 2007PV033859

PATIENT
  Age: 44 Year
  Sex: Female

DRUGS (4)
  1. SYMLIN [Suspect]
     Indication: TYPE 1 DIABETES MELLITUS
     Dosage: 132 MCG;TID;SC ; SC ; 15 MCG;TID;SC
     Route: 058
     Dates: start: 20061201, end: 20070101
  2. SYMLIN [Suspect]
     Indication: TYPE 1 DIABETES MELLITUS
     Dosage: 132 MCG;TID;SC ; SC ; 15 MCG;TID;SC
     Route: 058
     Dates: start: 20070101, end: 20070101
  3. SYMLIN [Suspect]
     Indication: TYPE 1 DIABETES MELLITUS
     Dosage: 132 MCG;TID;SC ; SC ; 15 MCG;TID;SC
     Route: 058
     Dates: start: 20070101
  4. NOVOLOG [Concomitant]

REACTIONS (1)
  - INJECTION SITE IRRITATION [None]
